FAERS Safety Report 21605248 (Version 1)
Quarter: 2022Q4

REPORT INFORMATION
  Report Type: Spontaneous
  Country: CN (occurrence: None)
  Receive Date: 20221116
  Receipt Date: 20221116
  Transmission Date: 20230113
  Serious: Yes (Hospitalization)
  Sender: FDA-Public Use
  Company Number: CN-Eisai Medical Research-EC-2022-127746

PATIENT
  Age: 91 Year
  Sex: Male
  Weight: 50 kg

DRUGS (1)
  1. RABEPRAZOLE SODIUM [Suspect]
     Active Substance: RABEPRAZOLE SODIUM
     Indication: Abdominal discomfort
     Route: 048
     Dates: start: 20220904, end: 20220905

REACTIONS (2)
  - Blood pressure increased [Unknown]
  - Dermatitis allergic [Recovering/Resolving]

NARRATIVE: CASE EVENT DATE: 20220905
